FAERS Safety Report 6292599-8 (Version None)
Quarter: 2009Q3

REPORT INFORMATION
  Report Type: 
  Country: None (occurrence: None)
  Receive Date: 20090729
  Receipt Date: 20090720
  Transmission Date: 20100115
  Serious: Yes (Other)
  Sender: FDA-Public Use
  Company Number: ADR10782009

PATIENT
  Age: 73 Year
  Sex: Male

DRUGS (8)
  1. AMLODIPINE [Suspect]
     Indication: HYPERTENSION
     Dosage: 10 MG, ORAL
     Route: 048
     Dates: start: 20081107, end: 20081108
  2. BENDROFLUAZIDE [Concomitant]
  3. CLENIL MODULITE [Concomitant]
  4. CO-DYDRAMOL [Concomitant]
  5. CYPROTERONE [Concomitant]
  6. SALBUTAMOL [Concomitant]
  7. SALMETEROL [Concomitant]
  8. ZOLADEX [Concomitant]

REACTIONS (1)
  - MUSCULOSKELETAL STIFFNESS [None]
